FAERS Safety Report 6016204-0 (Version None)
Quarter: 2008Q4

REPORT INFORMATION
  Report Type: 
  Country: None (occurrence: None)
  Receive Date: 20081217
  Receipt Date: 20080910
  Transmission Date: 20090506
  Serious: Yes (Hospitalization)
  Sender: FDA-Public Use
  Company Number: US-WYE-H05603708

PATIENT
  Age: 53 Year
  Sex: Male
  Weight: 74 kg

DRUGS (8)
  1. TORISEL [Suspect]
     Indication: RENAL CELL CARCINOMA
     Dosage: 25 MG 1X PER 1 WK, INTRAVENOUS ; 25 MG 1X PER 1 WK, INTRAVENOUS
     Route: 042
     Dates: start: 20080807, end: 20080807
  2. TORISEL [Suspect]
     Indication: RENAL CELL CARCINOMA
     Dosage: 25 MG 1X PER 1 WK, INTRAVENOUS ; 25 MG 1X PER 1 WK, INTRAVENOUS
     Route: 042
     Dates: start: 20080911
  3. ZOLEDRONATE (ZOLEDRONATE) [Concomitant]
  4. LORTAB [Concomitant]
  5. METHADONE HCL [Concomitant]
  6. LIBRIUM [Concomitant]
  7. FAMVIR [Concomitant]
  8. MYCOLOG (GRAMICIDIN/NEOMYCIN SULFATE/NYSTATIN/TRIAMCINOLONE ACETONIDE) [Concomitant]

REACTIONS (1)
  - WHITE BLOOD CELL COUNT DECREASED [None]
